FAERS Safety Report 4859750-5 (Version None)
Quarter: 2005Q4

REPORT INFORMATION
  Report Type: 
  Country: None (occurrence: None)
  Receive Date: 20051215
  Receipt Date: 20051205
  Transmission Date: 20060501
  Serious: Yes (Hospitalization, Other)
  Sender: FDA-Public Use
  Company Number: CHPA2005US02201

PATIENT
  Age: 83 Year
  Sex: Male
  Weight: 90.7 kg

DRUGS (3)
  1. MAALOX MS TOTAL STOMACH RELIEF PEPPERMINT (NCH) (BISMUTH SUBSALICYLATE [Suspect]
     Indication: STOMACH DISCOMFORT
     Dosage: 3 TSP, TID, ORAL
     Route: 048
     Dates: start: 20050815, end: 20050815
  2. NORVASC [Concomitant]
  3. ATENOLOL [Concomitant]

REACTIONS (4)
  - FAECES DISCOLOURED [None]
  - LOWER GASTROINTESTINAL HAEMORRHAGE [None]
  - POLYPECTOMY [None]
  - POST PROCEDURAL HAEMORRHAGE [None]
